FAERS Safety Report 8966852 (Version 2)
Quarter: 2013Q1

REPORT INFORMATION
  Report Type: Spontaneous
  Country: DE (occurrence: DE)
  Receive Date: 20121217
  Receipt Date: 20130117
  Transmission Date: 20140127
  Serious: Yes (Other)
  Sender: FDA-Public Use
  Company Number: DE-PFIZER INC-2012315108

PATIENT
  Age: 57 Year
  Sex: 0

DRUGS (4)
  1. LYRICA [Suspect]
     Dosage: UNK
     Dates: end: 201211
  2. LYRICA [Suspect]
     Dosage: 75 MG, 2X/DAY
     Dates: start: 201212
  3. TAVOR [Suspect]
     Dosage: 2.5 MG, UNK
  4. DULOXETINE [Concomitant]

REACTIONS (2)
  - Blood creatine phosphokinase increased [Unknown]
  - Drug dependence [Unknown]
